FAERS Safety Report 18774088 (Version 1)
Quarter: 2021Q1

REPORT INFORMATION
  Report Type: Spontaneous
  Country: IN (occurrence: IN)
  Receive Date: 20210122
  Receipt Date: 20210122
  Transmission Date: 20210419
  Serious: Yes (Hospitalization, Other)
  Sender: FDA-Public Use
  Company Number: IN-MSNLABS-2021MSNLIT00019

PATIENT
  Age: 34 Year
  Sex: Male

DRUGS (9)
  1. PREGABALIN CAPSULES 150 MG [Suspect]
     Active Substance: PREGABALIN
     Route: 065
     Dates: start: 2019, end: 2019
  2. PREGABALIN CAPSULES 150 MG [Suspect]
     Active Substance: PREGABALIN
     Indication: INTERVERTEBRAL DISC PROTRUSION
     Dosage: 350 MG/DAY
     Route: 065
     Dates: start: 2014, end: 2019
  3. CLONIDINE. [Interacting]
     Active Substance: CLONIDINE
     Indication: PRODUCT USED FOR UNKNOWN INDICATION
     Route: 065
     Dates: start: 2019
  4. CLONAZEPAM. [Interacting]
     Active Substance: CLONAZEPAM
     Indication: PRODUCT USED FOR UNKNOWN INDICATION
     Dosage: 1.5 MG/DAY IN DIVIDED DOSES
     Route: 065
     Dates: start: 2019
  5. ZOLPIDEM [Interacting]
     Active Substance: ZOLPIDEM TARTRATE
     Indication: PRODUCT USED FOR UNKNOWN INDICATION
     Route: 065
     Dates: start: 2019
  6. PROPRANOLOL [Interacting]
     Active Substance: PROPRANOLOL HYDROCHLORIDE
     Indication: PRODUCT USED FOR UNKNOWN INDICATION
     Dosage: 40 MG/DAY
     Route: 065
     Dates: start: 2019
  7. PREGABALIN CAPSULES 150 MG [Suspect]
     Active Substance: PREGABALIN
     Dosage: 150 MG/DAY
     Route: 065
  8. HEROIN [Suspect]
     Active Substance: DIAMORPHINE
     Indication: PRODUCT USED FOR UNKNOWN INDICATION
     Route: 065
  9. NALTREXONE [Interacting]
     Active Substance: NALTREXONE
     Indication: PRODUCT USED FOR UNKNOWN INDICATION
     Route: 065

REACTIONS (7)
  - Decreased appetite [None]
  - Drug withdrawal syndrome [None]
  - Substance dependence [None]
  - Drug dependence [None]
  - Depressed mood [None]
  - Decreased interest [None]
  - Drug abuse [None]
